FAERS Safety Report 15561175 (Version 2)
Quarter: 2019Q1

REPORT INFORMATION
  Report Type: Spontaneous
  Country: FR (occurrence: FR)
  Receive Date: 20181029
  Receipt Date: 20190131
  Transmission Date: 20190417
  Serious: Yes (Hospitalization, Other)
  Sender: FDA-Public Use
  Company Number: FR-PFIZER INC-2018439080

PATIENT
  Age: 66 Year
  Sex: Female
  Weight: 50 kg

DRUGS (5)
  1. BRINTELLIX [Suspect]
     Active Substance: VORTIOXETINE HYDROBROMIDE
     Indication: DEPRESSION
     Dosage: 5 MG, 1X/DAY
     Route: 048
  2. TETRALYSAL [LYMECYCLINE] [Suspect]
     Active Substance: LYMECYCLINE
     Dosage: 150 MG, 1X/DAY
     Route: 048
  3. OROMONE [Suspect]
     Active Substance: ESTRADIOL
     Indication: HORMONE REPLACEMENT THERAPY
     Dosage: 1 DF, 1X/DAY
     Route: 048
     Dates: end: 201810
  4. ANDROCUR [Suspect]
     Active Substance: CYPROTERONE ACETATE
     Dosage: 50 MG, 1X/DAY
     Route: 048
     Dates: start: 2006, end: 20180927
  5. ALPRAZOLAM. [Suspect]
     Active Substance: ALPRAZOLAM
     Indication: DEPRESSION
     Dosage: 0.5 MG, 1X/DAY
     Route: 048

REACTIONS (1)
  - Meningioma [Recovering/Resolving]

NARRATIVE: CASE EVENT DATE: 201804
